FAERS Safety Report 12323434 (Version 2)
Quarter: 2016Q2

REPORT INFORMATION
  Report Type: Spontaneous
  Country: US (occurrence: US)
  Receive Date: 20160502
  Receipt Date: 20160614
  Transmission Date: 20160815
  Serious: Yes (Hospitalization)
  Sender: FDA-Public Use
  Company Number: US-PFIZER INC-2016203023

PATIENT
  Age: 74 Year
  Sex: Female

DRUGS (1)
  1. LYRICA [Suspect]
     Active Substance: PREGABALIN
     Dosage: 150 MG, 4X/DAY (MAX 600MG DAILY)

REACTIONS (5)
  - Joint stiffness [Unknown]
  - Walking aid user [Unknown]
  - Pain [Unknown]
  - Joint dislocation [Not Recovered/Not Resolved]
  - Burning sensation [Not Recovered/Not Resolved]
